FAERS Safety Report 21856270 (Version 1)
Quarter: 2023Q1

REPORT INFORMATION
  Report Type: Spontaneous
  Country: US (occurrence: US)
  Receive Date: 20230112
  Receipt Date: 20230112
  Transmission Date: 20230418
  Serious: No
  Sender: FDA-Public Use
  Company Number: US-JNJFOC-20230116000

PATIENT
  Age: 64 Year
  Sex: Female
  Weight: 59.020 kg

DRUGS (1)
  1. TREMFYA [Suspect]
     Active Substance: GUSELKUMAB
     Indication: Skin disorder
     Dosage: 30 DAYS AFTER THE FIRST DOSE, THEN HER DOSES WILL BE EVERY 3 MONTHS
     Route: 065

REACTIONS (6)
  - Product storage error [Unknown]
  - Product label issue [Unknown]
  - Skin disorder [Unknown]
  - Product dose omission issue [Unknown]
  - Off label use [Unknown]
  - Off label use [Unknown]

NARRATIVE: CASE EVENT DATE: 20230109
